FAERS Safety Report 18000982 (Version 1)
Quarter: 2020Q3

REPORT INFORMATION
  Report Type: Spontaneous
  Country: DE (occurrence: DE)
  Receive Date: 20200709
  Receipt Date: 20200709
  Transmission Date: 20201103
  Serious: Yes (Disabling)
  Sender: FDA-Public Use
  Company Number: DE-VERITY PHARMACEUTICALS, INC.-2020VTY00097

PATIENT
  Age: 73 Year
  Sex: Male

DRUGS (5)
  1. VALSACOR [Concomitant]
     Active Substance: VALSARTAN
  2. TRELSTAR [Suspect]
     Active Substance: TRIPTORELIN PAMOATE
     Indication: PROSTATE CANCER
     Dosage: 3.75 MG, 1X/MONTH (1 IN 1M)
     Route: 030
     Dates: start: 202004
  3. BICALUTAMIDE. [Suspect]
     Active Substance: BICALUTAMIDE
     Dosage: 50 MG
     Dates: start: 202005
  4. EBRANTIL [Concomitant]
     Active Substance: URAPIDIL
  5. BICALUTAMIDE. [Suspect]
     Active Substance: BICALUTAMIDE
     Indication: PROSTATE CANCER
     Dosage: 150 MG
     Dates: start: 201709, end: 202005

REACTIONS (4)
  - Back pain [Unknown]
  - Drug ineffective [Unknown]
  - Spinal disorder [Not Recovered/Not Resolved]
  - Product administered at inappropriate site [Unknown]

NARRATIVE: CASE EVENT DATE: 2020
